FAERS Safety Report 12694901 (Version 2)
Quarter: 2016Q3

REPORT INFORMATION
  Report Type: Spontaneous
  Country: US (occurrence: US)
  Receive Date: 20160829
  Receipt Date: 20160916
  Transmission Date: 20161109
  Serious: Yes (Life-Threatening, Hospitalization, Other)
  Sender: FDA-Public Use
  Company Number: US-009507513-1608USA014168

PATIENT
  Sex: Male

DRUGS (1)
  1. JANUVIA [Suspect]
     Active Substance: SITAGLIPTIN PHOSPHATE
     Indication: TYPE 2 DIABETES MELLITUS
     Dosage: 100 MG, QD
     Route: 048
     Dates: start: 20071006, end: 20141002

REACTIONS (23)
  - Glaucoma [Unknown]
  - Lymphadenopathy [Not Recovered/Not Resolved]
  - Anaemia [Not Recovered/Not Resolved]
  - Large intestine polyp [Unknown]
  - Metastases to liver [Not Recovered/Not Resolved]
  - Abdominal pain [Unknown]
  - Bile duct stenosis [Unknown]
  - Insomnia [Not Recovered/Not Resolved]
  - Cholangitis [Recovering/Resolving]
  - Pancreatic carcinoma metastatic [Not Recovered/Not Resolved]
  - Hypotension [Unknown]
  - Hypertension [Not Recovered/Not Resolved]
  - Arthralgia [Unknown]
  - Gastrointestinal haemorrhage [Unknown]
  - Haemorrhagic anaemia [Unknown]
  - Deep vein thrombosis [Unknown]
  - Appendicectomy [Unknown]
  - Sleep apnoea syndrome [Unknown]
  - Adverse event [Unknown]
  - Gout [Not Recovered/Not Resolved]
  - Liver disorder [Unknown]
  - Rheumatoid arthritis [Unknown]
  - Metastases to peritoneum [Not Recovered/Not Resolved]

NARRATIVE: CASE EVENT DATE: 20140928
